FAERS Safety Report 6260771-9 (Version None)
Quarter: 2009Q3

REPORT INFORMATION
  Report Type: 
  Country: None (occurrence: None)
  Receive Date: 20090706
  Receipt Date: 20090624
  Transmission Date: 20100115
  Serious: Yes (Other)
  Sender: FDA-Public Use
  Company Number: TPA2009A01575

PATIENT
  Age: 38 Year
  Sex: Male

DRUGS (4)
  1. ULORIC [Suspect]
     Indication: GOUT
     Dosage: 80 MG, UNKNOWN, PER ORAL
     Route: 048
     Dates: start: 20090601, end: 20090601
  2. NEURONTIN [Concomitant]
  3. HALCION [Concomitant]
  4. COLCHICINE (COLCHICINE) [Concomitant]

REACTIONS (1)
  - CONVULSION [None]
